FAERS Safety Report 21299641 (Version 1)
Quarter: 2022Q3

REPORT INFORMATION
  Report Type: Report from Study
  Country: US (occurrence: US)
  Receive Date: 20220906
  Receipt Date: 20220906
  Transmission Date: 20221026
  Serious: Yes (Death, Other)
  Sender: FDA-Public Use
  Company Number: US-BRISTOL-MYERS SQUIBB COMPANY-2022-101618

PATIENT
  Age: 80 Year
  Sex: Male
  Weight: 75.3 kg

DRUGS (2)
  1. EMPLICITI [Suspect]
     Active Substance: ELOTUZUMAB
     Indication: Plasma cell myeloma
     Dosage: WEEKLY FOR 2 CYCLES THEN MONTHLY
     Route: 042
     Dates: start: 20190423, end: 20200901
  2. DEXAMETHASONE [Suspect]
     Active Substance: DEXAMETHASONE
     Indication: Plasma cell myeloma
     Route: 048
     Dates: start: 20190423, end: 20200901

REACTIONS (1)
  - Death [Fatal]
